FAERS Safety Report 24527462 (Version 4)
Quarter: 2024Q4

REPORT INFORMATION
  Report Type: Spontaneous
  Country: US (occurrence: US)
  Receive Date: 20241021
  Receipt Date: 20241030
  Transmission Date: 20250115
  Serious: No
  Sender: Haleon PLC
  Company Number: US-HALEON-2203392

PATIENT
  Sex: Male

DRUGS (2)
  1. ALLI [Suspect]
     Active Substance: ORLISTAT
     Indication: Weight decreased
     Dosage: ONCE PER DAY AT MEALTIME X2
     Dates: end: 20241020
  2. ALLI [Suspect]
     Active Substance: ORLISTAT
     Indication: Constipation

REACTIONS (5)
  - Bowel movement irregularity [Recovering/Resolving]
  - Product counterfeit [Unknown]
  - Drug effect less than expected [Unknown]
  - Product complaint [Unknown]
  - Product use in unapproved indication [Unknown]
